FAERS Safety Report 8423857-6 (Version None)
Quarter: 2012Q2

REPORT INFORMATION
  Report Type: 
  Country: None (occurrence: None)
  Receive Date: 20120608
  Receipt Date: 20110512
  Transmission Date: 20120825
  Serious: No
  Sender: FDA-Public Use
  Company Number: US-ASTRAZENECA-2011SE29877

PATIENT
  Age: 60 Year
  Sex: Female

DRUGS (3)
  1. CRESTOR [Concomitant]
     Route: 048
  2. SYMBICORT [Concomitant]
     Route: 055
  3. ATACAND [Suspect]
     Route: 048

REACTIONS (2)
  - ADVERSE EVENT [None]
  - BLOOD CREATININE ABNORMAL [None]
